FAERS Safety Report 6626768-1 (Version None)
Quarter: 2010Q1

REPORT INFORMATION
  Report Type: 
  Country: None (occurrence: None)
  Receive Date: 20100311
  Receipt Date: 20100304
  Transmission Date: 20100710
  Serious: Yes (Other)
  Sender: FDA-Public Use
  Company Number: US-BIOGENIDEC-2007BI002746

PATIENT
  Age: 43 Year
  Sex: Male

DRUGS (2)
  1. AVONEX [Suspect]
     Indication: MULTIPLE SCLEROSIS
     Route: 030
     Dates: start: 20000303, end: 20070129
  2. AVONEX [Suspect]
     Route: 030
     Dates: start: 20090207, end: 20090101

REACTIONS (2)
  - HODGKIN'S DISEASE [None]
  - MULTIPLE SCLEROSIS RELAPSE [None]
